FAERS Safety Report 16616020 (Version 2)
Quarter: 2019Q3

REPORT INFORMATION
  Report Type: Report from Study
  Country: US (occurrence: US)
  Receive Date: 20190723
  Receipt Date: 20190730
  Transmission Date: 20191004
  Serious: Yes (Hospitalization)
  Sender: FDA-Public Use
  Company Number: US-ROCHE-2354722

PATIENT
  Age: 76 Year
  Sex: Male
  Weight: 79.8 kg

DRUGS (14)
  1. DOCUSATE [Concomitant]
     Active Substance: DOCUSATE
  2. BENZONATATE. [Concomitant]
     Active Substance: BENZONATATE
  3. GUAIFENESIN. [Concomitant]
     Active Substance: GUAIFENESIN
  4. SENNA [SENNA ALEXANDRINA] [Concomitant]
     Active Substance: SENNA LEAF
  5. CABOZANTINIB [Suspect]
     Active Substance: CABOZANTINIB
     Indication: HEPATOCELLULAR CARCINOMA
     Route: 048
     Dates: start: 20190513
  6. OXYCODONE [Concomitant]
     Active Substance: OXYCODONE
  7. ALBUTEROL [SALBUTAMOL] [Concomitant]
     Active Substance: ALBUTEROL
  8. FUROSEMIDE. [Concomitant]
     Active Substance: FUROSEMIDE
  9. METFORMIN [Concomitant]
     Active Substance: METFORMIN HYDROCHLORIDE
     Route: 065
  10. ONDANSETRON [Concomitant]
     Active Substance: ONDANSETRON
  11. SITAGLIPTIN [Concomitant]
     Active Substance: SITAGLIPTIN
  12. ATEZOLIZUMAB. [Suspect]
     Active Substance: ATEZOLIZUMAB
     Indication: HEPATOCELLULAR CARCINOMA
     Route: 042
     Dates: start: 20190513
  13. PRAVASTATIN. [Concomitant]
     Active Substance: PRAVASTATIN
  14. SPIRONOLACTONE. [Concomitant]
     Active Substance: SPIRONOLACTONE

REACTIONS (2)
  - Haemoptysis [Recovered/Resolved]
  - Scrotal oedema [Recovering/Resolving]

NARRATIVE: CASE EVENT DATE: 20190702
